FAERS Safety Report 12487376 (Version 1)
Quarter: 2016Q2

REPORT INFORMATION
  Report Type: Spontaneous
  Country: IT (occurrence: IT)
  Receive Date: 20160622
  Receipt Date: 20160622
  Transmission Date: 20160815
  Serious: Yes (Other)
  Sender: FDA-Public Use
  Company Number: IT-ROCHE-1779123

PATIENT
  Age: 85 Year
  Sex: Male

DRUGS (12)
  1. DEURSIL [Concomitant]
     Active Substance: URSODIOL
     Dosage: ^10X450 MG PROLONGED-RELEASE HARD CAPSULES^
     Route: 065
  2. FOLIDEX [Concomitant]
     Active Substance: FOLIC ACID
     Dosage: ^400 MCG TABLETS^ 28 TABLETS
     Route: 065
  3. ALENDROS [Concomitant]
     Active Substance: ALENDRONATE SODIUM
  4. HIZAAR [Concomitant]
     Active Substance: HYDROCHLOROTHIAZIDE\LOSARTAN POTASSIUM
  5. MINIAS [Interacting]
     Active Substance: LORMETAZEPAM
     Indication: INSOMNIA
     Dosage: ^2.5 MG/ML ORAL DROPS, SOLUTION^ BOTTLE 20 ML
     Route: 048
     Dates: start: 20150307, end: 20160310
  6. LANSOX [Concomitant]
     Active Substance: LANSOPRAZOLE
     Dosage: ^30 MG HARD CAPSULES^ 14 CAPSULES
     Route: 065
  7. DELTACORTENE [Concomitant]
     Active Substance: PREDNISONE
     Dosage: ^25 MG TABLETS^ 10 TABLETS
     Route: 065
  8. PROZIN (ITALY) [Interacting]
     Active Substance: CHLORPROMAZINE HYDROCHLORIDE
     Indication: SCHIZOPHRENIA
     Dosage: ^25 MG COATED-TABLETS^ 25 TABLETS
     Route: 048
     Dates: start: 20160307, end: 20160310
  9. RIVOTRIL [Suspect]
     Active Substance: CLONAZEPAM
     Indication: SCHIZOPHRENIA
     Dosage: ^2.5 MG/ML ORAL DROPS, SOLUTION^ BOTTLE 10 ML
     Route: 048
     Dates: start: 20160307, end: 20160310
  10. TRITTICO [Interacting]
     Active Substance: TRAZODONE HYDROCHLORIDE
     Indication: SCHIZOPHRENIA
     Dosage: ^50 MG FILM-COATED TABLETS^ 30 TABLETS
     Route: 048
     Dates: start: 20160307, end: 20160310
  11. MESTINON [Concomitant]
     Active Substance: PYRIDOSTIGMINE BROMIDE
     Dosage: ^60 MG TABLETS^ 20 TABLETS
     Route: 048
  12. AVODART [Concomitant]
     Active Substance: DUTASTERIDE
     Dosage: ^0.5 MG SOFT CAPSULES^ 30 CAPSULES
     Route: 065

REACTIONS (4)
  - Confusional state [Recovering/Resolving]
  - Tremor [Recovering/Resolving]
  - Drug interaction [Unknown]
  - Drug abuse [Unknown]

NARRATIVE: CASE EVENT DATE: 20160310
